FAERS Safety Report 14626278 (Version 1)
Quarter: 2018Q1

REPORT INFORMATION
  Report Type: Spontaneous
  Country: DE (occurrence: DE)
  Receive Date: 20180312
  Receipt Date: 20180312
  Transmission Date: 20180509
  Serious: Yes (Congenital Anomaly)
  Sender: FDA-Public Use
  Company Number: DE-PFIZER INC-2018097114

PATIENT
  Sex: Male
  Weight: 3.26 kg

DRUGS (4)
  1. UTROGEST [Concomitant]
     Active Substance: PROGESTERONE
     Indication: PROGESTERONE DECREASED
     Dosage: 100 MG, 1X/DAY (6. - 6.1. GESTATIONAL WEEK)
     Route: 064
     Dates: start: 20161022, end: 20161023
  2. FOLIC ACID. [Concomitant]
     Active Substance: FOLIC ACID
     Indication: DETOXIFICATION
     Dosage: 5 MG, DAILY (6. - 6.2. GESTATIONAL WEEK)
     Route: 064
     Dates: start: 20161022, end: 20161024
  3. METHOTREXATE SODIUM. [Suspect]
     Active Substance: METHOTREXATE SODIUM
     Dosage: 15 MG DAILY / ONCE. RECEIVED MTX INSTEAD OF DALTEPARIN (6. - 6. GESTATIONAL WEEK)
     Route: 064
     Dates: start: 20161022, end: 20161022
  4. FRAGMIN [Concomitant]
     Active Substance: DALTEPARIN SODIUM
     Indication: FACTOR V LEIDEN MUTATION
     Dosage: UNK
     Route: 064

REACTIONS (3)
  - Maternal exposure during pregnancy [Unknown]
  - Anal atresia [Unknown]
  - Accidental exposure to product [Unknown]

NARRATIVE: CASE EVENT DATE: 20161022
